FAERS Safety Report 16243481 (Version 1)
Quarter: 2019Q2

REPORT INFORMATION
  Report Type: Spontaneous
  Country: US (occurrence: US)
  Receive Date: 20190322
  Receipt Date: 20190322
  Transmission Date: 20190711
  Serious: No
  Sender: FDA-Public Use
  Company Number: None

PATIENT
  Age: 61 Year
  Sex: Female

DRUGS (20)
  1. SILDENAFIL. [Concomitant]
     Active Substance: SILDENAFIL
  2. SENNA [Concomitant]
     Active Substance: SENNA LEAF\SENNOSIDES\SENNOSIDES A AND B
  3. METFORMIN [Concomitant]
     Active Substance: METFORMIN HYDROCHLORIDE
  4. LETAIRIS [Suspect]
     Active Substance: AMBRISENTAN
     Indication: PULMONARY ARTERIAL HYPERTENSION
     Route: 048
     Dates: start: 201601
  5. RANITIDINE. [Concomitant]
     Active Substance: RANITIDINE
  6. VENTOLIN HFA [Concomitant]
     Active Substance: ALBUTEROL SULFATE
  7. FUROSEMIDE. [Concomitant]
     Active Substance: FUROSEMIDE
  8. DULOXETINE. [Concomitant]
     Active Substance: DULOXETINE
  9. OXYCODONE [Concomitant]
     Active Substance: OXYCODONE
  10. ASPIRIN. [Concomitant]
     Active Substance: ASPIRIN
  11. INAQUILN NPH [Concomitant]
  12. LETAIRIS [Suspect]
     Active Substance: AMBRISENTAN
     Indication: CONNECTIVE TISSUE DISORDER
     Route: 048
     Dates: start: 201601
  13. PANTOPRAZOLE [Concomitant]
     Active Substance: PANTOPRAZOLE
  14. DEXAMETHASONE. [Concomitant]
     Active Substance: DEXAMETHASONE
  15. SPIRONOLACTONE. [Concomitant]
     Active Substance: SPIRONOLACTONE
  16. INSULIN LISPRO [Concomitant]
     Active Substance: INSULIN LISPRO
  17. MS CONTIN [Concomitant]
     Active Substance: MORPHINE SULFATE
  18. LETAIRIS [Suspect]
     Active Substance: AMBRISENTAN
     Indication: HEART DISEASE CONGENITAL
     Route: 048
     Dates: start: 201601
  19. ATROVENT HFA [Concomitant]
     Active Substance: IPRATROPIUM BROMIDE
  20. DIGOXIN. [Concomitant]
     Active Substance: DIGOXIN

REACTIONS (6)
  - Pain [None]
  - Fatigue [None]
  - Cholelithiasis [None]
  - Sedation [None]
  - Lung cancer metastatic [None]
  - Malignant neoplasm progression [None]

NARRATIVE: CASE EVENT DATE: 20190220
